FAERS Safety Report 4613369-X (Version None)
Quarter: 2005Q1

REPORT INFORMATION
  Report Type: 
  Country: None (occurrence: None)
  Receive Date: 20050316
  Receipt Date: 20050228
  Transmission Date: 20050727
  Serious: Yes (Other)
  Sender: FDA-Public Use
  Company Number: S05-UKI-00929-01

PATIENT
  Age: 49 Year
  Sex: Male

DRUGS (2)
  1. CIPRALEX (ESCITALOPRAM) [Suspect]
     Indication: DEPRESSION
     Dosage: 5 MG QD PO
     Route: 048
     Dates: start: 20041124, end: 20050202
  2. ZOPICLONE [Concomitant]

REACTIONS (4)
  - DRY MOUTH [None]
  - DYSURIA [None]
  - EJACULATION FAILURE [None]
  - URINE FLOW DECREASED [None]
